FAERS Safety Report 6283694-8 (Version None)
Quarter: 2009Q3

REPORT INFORMATION
  Report Type: 
  Country: None (occurrence: None)
  Receive Date: 20090724
  Receipt Date: 20090527
  Transmission Date: 20100115
  Serious: No
  Sender: FDA-Public Use
  Company Number: US-ALEXION-A200900422

PATIENT
  Sex: Male

DRUGS (6)
  1. SOLIRIS [Suspect]
     Indication: PAROXYSMAL NOCTURNAL HAEMOGLOBINURIA
     Dosage: UNK
     Route: 042
     Dates: start: 20081125
  2. VITAMIN B-12 [Concomitant]
     Dosage: 1 MG, QD
     Route: 048
  3. FOLIC ACID [Concomitant]
     Dosage: UNK, BID
     Route: 048
  4. PREDNISONE TAB [Concomitant]
     Dosage: 20 MG, QOD WEEKLY
     Dates: start: 20090201
  5. PREDNISONE TAB [Concomitant]
     Dosage: ALTERNATING 10 MG/ 20 MG QOD
  6. PREDNISONE TAB [Concomitant]
     Dosage: 20 MG, QOD

REACTIONS (3)
  - CHEST PAIN [None]
  - PALPITATIONS [None]
  - STRESS [None]
